FAERS Safety Report 5850169-7 (Version None)
Quarter: 2008Q3

REPORT INFORMATION
  Report Type: 
  Country: None (occurrence: None)
  Receive Date: 20080819
  Receipt Date: 20080807
  Transmission Date: 20090109
  Serious: No
  Sender: FDA-Public Use
  Company Number: US-BOEHRINGER INGELHEIM GMBH, GERMANY-2008-BP-12506BP

PATIENT
  Sex: Female

DRUGS (8)
  1. SPIRIVA [Suspect]
     Indication: CHRONIC OBSTRUCTIVE PULMONARY DISEASE
     Route: 055
     Dates: start: 20080601, end: 20080728
  2. LEXAPRO [Concomitant]
     Indication: DEPRESSION
     Route: 048
     Dates: start: 20070101
  3. TRENTAL [Concomitant]
     Indication: PROPHYLAXIS
     Route: 048
     Dates: start: 19960101
  4. HYZAAR [Concomitant]
     Indication: HYPERTENSION
     Dosage: 100/12.5 MG, ONCE DAILY
     Route: 048
     Dates: start: 20020101
  5. LIPITOR [Concomitant]
     Indication: HYPERLIPIDAEMIA
     Route: 048
     Dates: start: 20020101
  6. SYNTHROID [Concomitant]
     Indication: HYPERTHYROIDISM
     Route: 048
     Dates: start: 19580101
  7. ASPIRIN [Concomitant]
     Indication: PROPHYLAXIS
     Route: 048
     Dates: start: 19980101
  8. PRESERVISON WITH LUTEIN [Concomitant]
     Indication: VITAMIN SUPPLEMENTATION
     Dosage: 2 CASPULES
     Route: 048
     Dates: start: 20080201

REACTIONS (1)
  - LARYNGITIS [None]
